FAERS Safety Report 8847863 (Version 1)
Quarter: 2012Q4

REPORT INFORMATION
  Report Type: 
  Country: DE (occurrence: DE)
  Receive Date: 20121018
  Receipt Date: 20121018
  Transmission Date: 20130627
  Serious: Yes (Other)
  Sender: FDA-Public Use
  Company Number: DE-TEVA-362902GER

PATIENT
  Age: 18 Year
  Sex: Male
  Weight: 65 kg

DRUGS (3)
  1. AZITHROMYCIN [Suspect]
     Indication: BRONCHITIS
     Dosage: 500 Milligram Daily;
     Route: 048
     Dates: start: 20120508, end: 20120510
  2. PARACETAMOL [Concomitant]
     Indication: HEADACHE
     Dosage: 1000 Milligram Daily;
     Route: 048
     Dates: start: 20120509, end: 20120510
  3. AMBROXOL [Concomitant]
     Indication: COUGH
     Dosage: 4 ml Daily;
     Route: 048
     Dates: start: 20120508, end: 20120510

REACTIONS (5)
  - Delirium [Recovered/Resolved]
  - Aggression [Recovered/Resolved]
  - Agitation [Recovered/Resolved]
  - Disorientation [Recovered/Resolved]
  - Self injurious behaviour [Recovered/Resolved]
